FAERS Safety Report 7148277-6 (Version None)
Quarter: 2010Q4

REPORT INFORMATION
  Report Type: 
  Country: None (occurrence: None)
  Receive Date: 20101124
  Receipt Date: 20101109
  Transmission Date: 20110411
  Serious: Yes (Hospitalization)
  Sender: FDA-Public Use
  Company Number: 1000015672

PATIENT
  Age: 92 Year
  Sex: Male

DRUGS (9)
  1. ESCITALOPRAM [Suspect]
     Indication: DEPRESSION
     Dosage: 10 MG (10 MG,1 IN 1 D),ORAL
     Route: 048
     Dates: start: 20100601, end: 20100910
  2. AERIUS (DESLORATADINE) [Suspect]
     Dosage: ORAL
     Route: 048
     Dates: start: 20071001
  3. XATRAL (ALFUZOSIN) (2.5 MILLIGRAM, TABLETS) [Suspect]
     Indication: POLLAKIURIA
     Dosage: 5 MG (2.5 MG,2 IN 1 D),ORAL
     Route: 048
     Dates: start: 20080301, end: 20100910
  4. KARDEGIC (ACETYLSALICYLATE LYSINE) (75 MILLIGRAM, POWDER) [Suspect]
     Dosage: 75 MG (75 MG,1 IN 1  ),ORAL
     Route: 048
     Dates: start: 20080501
  5. SPIRONOLACTONE [Suspect]
     Dosage: (1 IN 1 D),ORAL
     Route: 048
     Dates: start: 20090101, end: 20100910
  6. ATARAX [Suspect]
     Dosage: ORAL
     Route: 048
     Dates: start: 20090201
  7. PANTOPRAZOLE SODIUM [Suspect]
     Dosage: 20 MG (20 MG,1 IN 1 D),ORAL
     Route: 048
     Dates: start: 20100501, end: 20100910
  8. FURADANTINE (NITROFURANTOIN) (CAPSUILES) [Suspect]
     Dosage: 100 MG (50 MG,2 IN 1 D)
     Dates: start: 20100828, end: 20100910
  9. BACTRIM [Suspect]
     Dosage: 1 DF (1 DOSAGE FORMS, 1 IN 1 D),ORAL
     Route: 048
     Dates: start: 20100817, end: 20100827

REACTIONS (3)
  - LICHENOID KERATOSIS [None]
  - PRURIGO [None]
  - TOXIC SKIN ERUPTION [None]
